FAERS Safety Report 7380565-0 (Version None)
Quarter: 2011Q1

REPORT INFORMATION
  Report Type: 
  Country: None (occurrence: None)
  Receive Date: 20110321
  Receipt Date: 20110304
  Transmission Date: 20110831
  Serious: Yes (Life-Threatening, Hospitalization)
  Sender: FDA-Public Use
  Company Number: 2011000446

PATIENT
  Age: 72 Year
  Sex: Female
  Weight: 56.6089 kg

DRUGS (5)
  1. ERLOTINIB (ERLOTINIB) (TABLET) (ERLOTINIB) [Suspect]
     Indication: LUNG CANCER METASTATIC
     Dosage: 150 MG, DAILY,ORAL
     Route: 048
     Dates: start: 20101216
  2. LOVASTATIN [Concomitant]
  3. SIMVASTATIN [Concomitant]
  4. GLUCOSAMIDE (GLUCOSAMIDE) [Concomitant]
  5. PAZOPANIB/PLACEBO [Suspect]
     Indication: LUNG CANCER METASTATIC
     Dosage: 600 MG, DAILY, ORAL
     Route: 048
     Dates: start: 20101226

REACTIONS (2)
  - OESOPHAGEAL ULCER [None]
  - ANAEMIA [None]
